FAERS Safety Report 20015958 (Version 1)
Quarter: 2021Q4

REPORT INFORMATION
  Report Type: Spontaneous
  Country: US (occurrence: None)
  Receive Date: 20211102
  Receipt Date: 20211102
  Transmission Date: 20220303
  Serious: Yes (Other)
  Sender: FDA-Public Use
  Company Number: None

PATIENT
  Age: 26 Year
  Sex: Female

DRUGS (1)
  1. REGEN-COV [Suspect]
     Active Substance: CASIRIVIMAB\IMDEVIMAB
     Indication: COVID-19
     Dosage: OTHER FREQUENCY : ONCE;?
     Route: 041
     Dates: start: 20211102, end: 20211102

REACTIONS (5)
  - Infusion related hypersensitivity reaction [None]
  - Flushing [None]
  - Tachypnoea [None]
  - Throat tightness [None]
  - Exposure during pregnancy [None]

NARRATIVE: CASE EVENT DATE: 20211102
